FAERS Safety Report 4316574-5 (Version None)
Quarter: 2004Q1

REPORT INFORMATION
  Report Type: 
  Country: None (occurrence: None)
  Receive Date: 20040312
  Receipt Date: 20040312
  Transmission Date: 20041129
  Serious: No
  Sender: FDA-Public Use
  Company Number: None

PATIENT
  Age: 50 Year
  Sex: Female
  Weight: 127.0072 kg

DRUGS (10)
  1. METFORMIN ER 500 MG IVAX PHARMACEUTICALS, INC. [Suspect]
     Dosage: SEE IMAGE
     Route: 048
     Dates: start: 19950101, end: 20040311
  2. METFORMIN ER 500 MG IVAX PHARMACEUTICALS, INC. [Suspect]
     Dosage: SEE IMAGE
     Route: 048
     Dates: start: 20020101, end: 20040311
  3. METFORMIN ER 500 MG IVAX PHARMACEUTICALS, INC. [Suspect]
     Dosage: 2 TABLET 1 X DAILY ORAL
     Route: 048
     Dates: start: 19950101, end: 20040311
  4. LIPITOR [Concomitant]
  5. AVALIDE [Concomitant]
  6. ACTOS [Concomitant]
  7. DETROL LA [Concomitant]
  8. ALLOPURINOL [Concomitant]
  9. ANACIN [Concomitant]
  10. SUDAFED S.A. [Concomitant]

REACTIONS (3)
  - BLOOD GLUCOSE INCREASED [None]
  - DRUG EFFECT DECREASED [None]
  - PHARMACEUTICAL PRODUCT COMPLAINT [None]
